FAERS Safety Report 6751163-4 (Version None)
Quarter: 2010Q2

REPORT INFORMATION
  Report Type: 
  Country: None (occurrence: None)
  Receive Date: 20100602
  Receipt Date: 20100526
  Transmission Date: 20101027
  Serious: Yes (Hospitalization, Other)
  Sender: FDA-Public Use
  Company Number: FR-BRISTOL-MYERS SQUIBB COMPANY-15123433

PATIENT
  Age: 73 Year
  Sex: Female

DRUGS (5)
  1. ELISOR TABS [Suspect]
     Route: 048
     Dates: end: 20100402
  2. METFORMIN HCL [Suspect]
     Dates: end: 20100402
  3. DOLIPRANE [Suspect]
     Dates: end: 20100402
  4. KOREC [Suspect]
     Route: 048
     Dates: end: 20100402
  5. NICERGOLINE [Suspect]
     Dosage: 1 DF= 10 UNITS NOS
     Route: 048
     Dates: end: 20100402

REACTIONS (10)
  - COLITIS [None]
  - CYTOLYTIC HEPATITIS [None]
  - DIARRHOEA [None]
  - FALL [None]
  - HEAD INJURY [None]
  - LACTIC ACIDOSIS [None]
  - LOSS OF CONSCIOUSNESS [None]
  - MALAISE [None]
  - NAUSEA [None]
  - VOMITING [None]
